FAERS Safety Report 9236691 (Version 1)
Quarter: 2013Q2

REPORT INFORMATION
  Report Type: Spontaneous
  Country: US (occurrence: US)
  Receive Date: 20130417
  Receipt Date: 20130417
  Transmission Date: 20140414
  Serious: Yes (Other)
  Sender: FDA-Public Use
  Company Number: US-ASTRAZENECA-2013SE02395

PATIENT
  Sex: Male
  Weight: 5.4 kg

DRUGS (6)
  1. SYNAGIS [Suspect]
     Indication: RESPIRATORY SYNCYTIAL VIRUS INFECTION
     Dosage: MONTHLY
     Route: 030
     Dates: start: 20121101
  2. FLOVENT [Concomitant]
  3. IRON [Concomitant]
  4. POLY VI SOL [Concomitant]
  5. PROBIOTIC [Concomitant]
  6. SINGULAIR [Concomitant]

REACTIONS (1)
  - Bronchopulmonary dysplasia [Unknown]
